FAERS Safety Report 5473534-9 (Version None)
Quarter: 2007Q3

REPORT INFORMATION
  Report Type: 
  Country: None (occurrence: None)
  Receive Date: 20070831
  Receipt Date: 20070613
  Transmission Date: 20080115
  Serious: No
  Sender: FDA-Public Use
  Company Number: 242123

PATIENT
  Age: 85 Year
  Sex: Male
  Weight: 83.4 kg

DRUGS (6)
  1. LUCENTIS [Suspect]
     Indication: OCULAR VASCULAR DISORDER
     Dosage: INTRAVITREAL
     Route: 050
     Dates: start: 20060701
  2. AVASTIN [Suspect]
     Indication: OCULAR VASCULAR DISORDER
     Dosage: Q2M
     Dates: start: 20050101
  3. PLAVIX [Concomitant]
  4. BLOOD PRESSURE MEDICATION NOS (ANTIHYPERTENSIVE NOS) [Concomitant]
  5. ASPIRIN [Concomitant]
  6. CONCOMITANT DRUG (GENERIC COMPONENT(S) NOT KNOWN) [Concomitant]

REACTIONS (2)
  - PHOTOPHOBIA [None]
  - VISUAL DISTURBANCE [None]
